FAERS Safety Report 7215307-2 (Version None)
Quarter: 2011Q1

REPORT INFORMATION
  Report Type: 
  Country: None (occurrence: None)
  Receive Date: 20110104
  Receipt Date: 20110104
  Transmission Date: 20110831
  Serious: Yes (Other)
  Sender: FDA-Public Use
  Company Number: None

PATIENT
  Age: 45 Year
  Sex: Male
  Weight: 67.1324 kg

DRUGS (1)
  1. FLONASE [Suspect]
     Dosage: BID NASAL SPRAY
     Route: 045

REACTIONS (1)
  - NASAL INFLAMMATION [None]
